FAERS Safety Report 8844473 (Version 2)
Quarter: 2012Q4

REPORT INFORMATION
  Report Type: 
  Country: BR (occurrence: BR)
  Receive Date: 20121017
  Receipt Date: 20121022
  Transmission Date: 20130627
  Serious: Yes (Hospitalization, Other)
  Sender: FDA-Public Use
  Company Number: PHHY2012BR091746

PATIENT
  Sex: Female
  Weight: 75 kg

DRUGS (9)
  1. EXELON PATCH [Suspect]
     Indication: MEMORY IMPAIRMENT
     Dosage: 4.6 mg/24hrs
     Route: 062
     Dates: start: 201109
  2. A.A.S. [Concomitant]
     Dosage: 100 mg, UNK
  3. COLECALCIFEROL [Concomitant]
     Dosage: 05 drp in the lunch
  4. FLUTICASONE FUROATE [Concomitant]
     Dosage: 02 DF, BID
     Route: 045
  5. OMEPRAZOLE [Concomitant]
     Dosage: 20 mg in the morning
  6. METICORTEN [Concomitant]
     Dosage: 05 mg in the morning
  7. MOTILIUM [Concomitant]
     Dosage: 10 mg in the meals
  8. QUETIAPINE FUMARATE [Concomitant]
     Dosage: 25 mg,  (01 tablet at 10 p.m.)
  9. MUVINLAX [Concomitant]
     Dosage: 01 DF, QD

REACTIONS (3)
  - Diarrhoea [Recovered/Resolved]
  - Dehydration [Recovered/Resolved]
  - Renal failure chronic [Recovered/Resolved]
